FAERS Safety Report 12772946 (Version 1)
Quarter: 2016Q3

REPORT INFORMATION
  Report Type: Spontaneous
  Country: US (occurrence: US)
  Receive Date: 20160922
  Receipt Date: 20160922
  Transmission Date: 20161109
  Serious: Yes (Other)
  Sender: FDA-Public Use
  Company Number: US-TEVA-694840USA

PATIENT
  Age: 60 Year
  Sex: Female
  Weight: 65.83 kg

DRUGS (1)
  1. PENTAZOCINE [Suspect]
     Active Substance: PENTAZOCINE
     Indication: PAIN
     Dosage: 50/0.5MG
     Route: 065
     Dates: end: 20160911

REACTIONS (22)
  - Nausea [Unknown]
  - Depression [Unknown]
  - Cough [Unknown]
  - Chills [Unknown]
  - Drug dose omission [Unknown]
  - Activities of daily living impaired [Unknown]
  - Platelet count decreased [Recovering/Resolving]
  - Tongue blistering [Unknown]
  - Flushing [Unknown]
  - Urinary tract infection [Unknown]
  - White blood cell count decreased [Unknown]
  - Chest discomfort [Unknown]
  - Photophobia [Unknown]
  - Swollen tongue [Unknown]
  - Decreased appetite [Unknown]
  - Asthenia [Unknown]
  - Dysphonia [Unknown]
  - Dysuria [Unknown]
  - Dysphagia [Unknown]
  - Rosacea [Unknown]
  - Papule [Unknown]
  - Malaise [Unknown]

NARRATIVE: CASE EVENT DATE: 20160912
